FAERS Safety Report 9383557 (Version 1)
Quarter: 2013Q3

REPORT INFORMATION
  Report Type: Spontaneous
  Country: US (occurrence: US)
  Receive Date: 20130704
  Receipt Date: 20130704
  Transmission Date: 20140515
  Serious: No
  Sender: FDA-Public Use
  Company Number: US-PFIZER INC-2013195843

PATIENT
  Age: 48 Year
  Sex: Female
  Weight: 68.03 kg

DRUGS (9)
  1. XELJANZ [Suspect]
     Indication: RHEUMATOID ARTHRITIS
     Dosage: 5 MG, 2X/DAY
     Route: 048
  2. PRILOSEC [Concomitant]
     Dosage: 10 MG, UNK
  3. NAPROXEN [Concomitant]
     Dosage: 250 MG, UNK
  4. LEVOTHYROXINE [Concomitant]
     Dosage: 50 UG, UNK
  5. POTASSIUM [Concomitant]
     Dosage: 75 MG, UNK
  6. LASIX [Concomitant]
     Dosage: 20 MG, UNK
  7. WELLBUTRIN [Concomitant]
     Dosage: 75 MG, UNK
  8. IRON [Concomitant]
     Dosage: UNK
  9. MULTIVITAMINS [Concomitant]
     Dosage: UNK

REACTIONS (4)
  - Headache [Unknown]
  - Blood iron decreased [Unknown]
  - Contusion [Unknown]
  - Upper-airway cough syndrome [Unknown]
